FAERS Safety Report 18946861 (Version 1)
Quarter: 2021Q1

REPORT INFORMATION
  Report Type: Spontaneous
  Country: FR (occurrence: FR)
  Receive Date: 20210226
  Receipt Date: 20210226
  Transmission Date: 20210420
  Serious: Yes (Hospitalization)
  Sender: FDA-Public Use
  Company Number: NVSC2021FR039942

PATIENT
  Age: 88 Year
  Sex: Male
  Weight: 70 kg

DRUGS (2)
  1. KETOTIFEN FUMARATE. [Suspect]
     Active Substance: KETOTIFEN FUMARATE
     Indication: CONJUNCTIVITIS ALLERGIC
     Dosage: 2 DF, QD
     Route: 047
     Dates: start: 20210201, end: 20210203
  2. DICLOFENAC [Suspect]
     Active Substance: DICLOFENAC
     Indication: ECZEMA
     Dosage: 1 DF, QD
     Route: 003
     Dates: start: 20210201, end: 20210203

REACTIONS (2)
  - Application site oedema [Recovered/Resolved]
  - Application site eczema [Recovered/Resolved]

NARRATIVE: CASE EVENT DATE: 20210203
